FAERS Safety Report 20901639 (Version 2)
Quarter: 2022Q2

REPORT INFORMATION
  Report Type: Spontaneous
  Country: US (occurrence: US)
  Receive Date: 20220601
  Receipt Date: 20220623
  Transmission Date: 20220720
  Serious: Yes (Other)
  Sender: FDA-Public Use
  Company Number: US-JNJFOC-20220558129

PATIENT
  Sex: Female

DRUGS (1)
  1. THROMBIN HUMAN [Suspect]
     Active Substance: THROMBIN HUMAN
     Indication: Product used for unknown indication
     Route: 065

REACTIONS (2)
  - Teratoma [Recovered/Resolved]
  - Ovarian mass [Recovered/Resolved]
